FAERS Safety Report 9114107 (Version 1)
Quarter: 2013Q1

REPORT INFORMATION
  Report Type: Spontaneous
  Country: US (occurrence: US)
  Receive Date: 20130129
  Receipt Date: 20130129
  Transmission Date: 20140127
  Serious: No
  Sender: FDA-Public Use
  Company Number: US-PFIZER INC-2013034205

PATIENT
  Sex: Female

DRUGS (2)
  1. GEODON [Suspect]
     Dosage: 60 MG, UNK
  2. GEODON [Suspect]
     Dosage: 40 MG, UNK

REACTIONS (4)
  - Sedation [Unknown]
  - Heart rate increased [Unknown]
  - Abnormal dreams [Unknown]
  - Memory impairment [Unknown]
